FAERS Safety Report 9510798 (Version 3)
Quarter: 2014Q1

REPORT INFORMATION
  Report Type: Spontaneous
  Country: US (occurrence: US)
  Receive Date: 20130910
  Receipt Date: 20140124
  Transmission Date: 20141002
  Serious: Yes (Other)
  Sender: FDA-Public Use
  Company Number: US-BIOGENIDEC-2013BI086605

PATIENT
  Age: 49 Year
  Sex: Female

DRUGS (5)
  1. AVONEX [Suspect]
     Indication: MULTIPLE SCLEROSIS
     Route: 030
     Dates: start: 20130803
  2. NORCO [Concomitant]
  3. ABILIFY [Concomitant]
  4. CYMBALTA [Concomitant]
  5. EFFEXOR [Concomitant]

REACTIONS (4)
  - Alcoholic liver disease [Unknown]
  - Hypophagia [Unknown]
  - Malaise [Unknown]
  - Headache [Unknown]
